FAERS Safety Report 26103981 (Version 2)
Quarter: 2025Q4

REPORT INFORMATION
  Report Type: Spontaneous
  Country: US (occurrence: US)
  Receive Date: 20251129
  Receipt Date: 20251231
  Transmission Date: 20260117
  Serious: No
  Sender: SANOFI AVENTIS
  Company Number: US-SANOFI-02735828

PATIENT
  Age: 77 Year
  Sex: Female

DRUGS (3)
  1. LANTUS SOLOSTAR [Suspect]
     Active Substance: INSULIN GLARGINE
     Indication: Diabetes mellitus
     Dosage: 16 IU, BID, (MORNING AND AT NIGHT)
  2. OZEMPIC [Concomitant]
     Active Substance: SEMAGLUTIDE
  3. OZEMPIC [Concomitant]
     Active Substance: SEMAGLUTIDE
     Dosage: TAKES THE MEDICATION IN THE MORNING AND AT NIGHT

REACTIONS (2)
  - Off label use [Unknown]
  - Product storage error [Unknown]

NARRATIVE: CASE EVENT DATE: 20250101
